FAERS Safety Report 10289860 (Version 3)
Quarter: 2014Q3

REPORT INFORMATION
  Report Type: Spontaneous
  Country: US (occurrence: US)
  Receive Date: 20140710
  Receipt Date: 20140911
  Transmission Date: 20150326
  Serious: Yes (Hospitalization, Other)
  Sender: FDA-Public Use
  Company Number: US-AMGEN INC.-USASP2014051215

PATIENT
  Age: 53 Year
  Sex: Female

DRUGS (1)
  1. ENBREL [Suspect]
     Active Substance: ETANERCEPT
     Indication: PSORIASIS
     Dosage: UNK UNK, QWK
     Route: 065
     Dates: start: 201307

REACTIONS (16)
  - Blood test abnormal [Not Recovered/Not Resolved]
  - Blood bilirubin abnormal [Not Recovered/Not Resolved]
  - Cough [Unknown]
  - Feeling cold [Unknown]
  - Weight decreased [Unknown]
  - Immune system disorder [Unknown]
  - Condition aggravated [Unknown]
  - Pneumonia [Unknown]
  - Skin disorder [Unknown]
  - Fatigue [Unknown]
  - Liver function test abnormal [Unknown]
  - Discomfort [Not Recovered/Not Resolved]
  - Gastric dilatation [Unknown]
  - Contusion [Unknown]
  - Chromaturia [Not Recovered/Not Resolved]
  - Feeling abnormal [Not Recovered/Not Resolved]

NARRATIVE: CASE EVENT DATE: 201403
